FAERS Safety Report 9894369 (Version 1)
Quarter: 2014Q1

REPORT INFORMATION
  Report Type: Spontaneous
  Country: KR (occurrence: KR)
  Receive Date: 20140213
  Receipt Date: 20140213
  Transmission Date: 20141002
  Serious: No
  Sender: FDA-Public Use
  Company Number: PHHY2014KR017771

PATIENT
  Age: 31 Year
  Sex: Male

DRUGS (2)
  1. TASIGNA [Suspect]
     Dosage: 300 MG, BID
     Route: 048
  2. TASIGNA [Suspect]
     Dosage: 600 MG ONCE
     Route: 048
     Dates: start: 20140211, end: 20140211

REACTIONS (2)
  - Incorrect dose administered [Unknown]
  - Accidental overdose [Unknown]
